FAERS Safety Report 25084771 (Version 1)
Quarter: 2025Q1

REPORT INFORMATION
  Report Type: Other
  Country: IN (occurrence: IN)
  Receive Date: 20250317
  Receipt Date: 20250317
  Transmission Date: 20250409
  Serious: Yes (Other)
  Sender: APTAPHARMA INC.
  Company Number: IN-AptaPharma Inc.-2173041

PATIENT
  Age: 32 Year
  Sex: Male

DRUGS (1)
  1. OSELTAMIVIR PHOSPHATE [Suspect]
     Active Substance: OSELTAMIVIR PHOSPHATE
     Indication: Influenza

REACTIONS (1)
  - Acute psychosis [Recovered/Resolved]
